FAERS Safety Report 7913629-0 (Version None)
Quarter: 2011Q4

REPORT INFORMATION
  Report Type: 
  Country: None (occurrence: None)
  Receive Date: 20111115
  Receipt Date: 20111110
  Transmission Date: 20120403
  Serious: No
  Sender: FDA-Public Use
  Company Number: US-PFIZER INC-2011277339

PATIENT
  Sex: Male
  Weight: 84.354 kg

DRUGS (7)
  1. VIAGRA [Suspect]
     Indication: ERECTILE DYSFUNCTION
     Dosage: 100 MG, UNK
     Route: 048
     Dates: end: 20111110
  2. FLONASE [Concomitant]
     Indication: HYPERSENSITIVITY
     Dosage: UNK
  3. CALCIUM [Concomitant]
     Dosage: 600 IU, UNK
  4. VITAMIN D [Concomitant]
     Dosage: 400 IU, UNK
  5. VIAGRA [Suspect]
     Indication: HYPOGONADISM
  6. LISINOPRIL [Concomitant]
     Indication: HYPERTENSION
     Dosage: 20 MG, UNK
  7. PRILOSEC [Concomitant]
     Indication: GASTROOESOPHAGEAL REFLUX DISEASE
     Dosage: 40 MG, UNK

REACTIONS (1)
  - DRUG INEFFECTIVE [None]
